FAERS Safety Report 9191959 (Version 3)
Quarter: 2013Q3

REPORT INFORMATION
  Report Type: Spontaneous
  Country: US (occurrence: US)
  Receive Date: 20130327
  Receipt Date: 20130712
  Transmission Date: 20140515
  Serious: No
  Sender: FDA-Public Use
  Company Number: US-BIOGENIDEC-2013BI026962

PATIENT
  Age: 47 Year
  Sex: Female

DRUGS (2)
  1. TYSABRI [Suspect]
     Indication: MULTIPLE SCLEROSIS
     Route: 042
     Dates: start: 20120301, end: 20130423
  2. AVONEX [Concomitant]
     Indication: MULTIPLE SCLEROSIS
     Route: 030

REACTIONS (6)
  - Poor venous access [Recovered/Resolved]
  - Device related infection [Recovered/Resolved]
  - Post procedural complication [Not Recovered/Not Resolved]
  - Catheter site discharge [Recovered/Resolved]
  - Dermatitis contact [Recovered/Resolved with Sequelae]
  - Blood potassium abnormal [Recovered/Resolved with Sequelae]
